FAERS Safety Report 8130807-9 (Version None)
Quarter: 2012Q1

REPORT INFORMATION
  Report Type: 
  Country: None (occurrence: None)
  Receive Date: 20120213
  Receipt Date: 20120203
  Transmission Date: 20120608
  Serious: No
  Sender: FDA-Public Use
  Company Number: US-BIOGENIDEC-2011BI035442

PATIENT
  Age: 59 Year
  Sex: Female

DRUGS (3)
  1. MELOXICAM [Concomitant]
     Indication: PREMEDICATION
  2. AVONEX [Suspect]
     Indication: MULTIPLE SCLEROSIS
     Route: 030
     Dates: start: 20110412
  3. IBUPROFEN [Concomitant]
     Indication: PREMEDICATION

REACTIONS (11)
  - HYPERTENSION [None]
  - HYPOAESTHESIA [None]
  - SPEECH DISORDER [None]
  - MUSCLE SPASMS [None]
  - DEPRESSED MOOD [None]
  - ABDOMINAL PAIN UPPER [None]
  - MENISCUS LESION [None]
  - ANXIETY [None]
  - SODIUM RETENTION [None]
  - NAUSEA [None]
  - HEADACHE [None]
